FAERS Safety Report 18011782 (Version 2)
Quarter: 2020Q3

REPORT INFORMATION
  Report Type: Report from Study
  Country: None (occurrence: JP)
  Receive Date: 20200713
  Receipt Date: 20200715
  Transmission Date: 20201103
  Serious: Yes (Hospitalization)
  Sender: FDA-Public Use
  Company Number: JP-ABBVIE-20K-087-3478016-00

PATIENT
  Age: 77 Year
  Sex: Male
  Weight: 59.7 kg

DRUGS (8)
  1. GLUTATHIONE [Concomitant]
     Active Substance: GLUTATHIONE
     Indication: HEPATITIS C
     Route: 042
     Dates: start: 20130415, end: 20141105
  2. FELBINAC [Concomitant]
     Active Substance: FELBINAC
     Indication: SCIATICA
  3. URSODEOXYCHOLIC ACID [Concomitant]
     Active Substance: URSODIOL
     Indication: HEPATITIS C
     Route: 048
     Dates: start: 20130415, end: 20141105
  4. PIPERACILLIN. [Concomitant]
     Active Substance: PIPERACILLIN SODIUM
     Indication: PRODUCT USED FOR UNKNOWN INDICATION
  5. MONOAMMONIUM GLYCYRRHIZINATE,GLYCINE AND L?CYSTEINE HYDROCHLORIDE [Concomitant]
     Indication: HEPATITIS C
     Route: 042
     Dates: start: 20130415, end: 20141105
  6. FELBINAC [Concomitant]
     Active Substance: FELBINAC
     Indication: LIGAMENT SPRAIN
     Route: 062
     Dates: start: 20140519, end: 20140621
  7. TAZOBACTAM [Concomitant]
     Active Substance: TAZOBACTAM
     Indication: PRODUCT USED FOR UNKNOWN INDICATION
  8. VIEKIRAX [Suspect]
     Active Substance: OMBITASVIR\PARITAPREVIR\RITONAVIR
     Indication: CHRONIC HEPATITIS C
     Route: 048
     Dates: start: 20140620, end: 20140911

REACTIONS (2)
  - Appendicitis [Recovering/Resolving]
  - Peritonitis [Recovering/Resolving]

NARRATIVE: CASE EVENT DATE: 20191231
